FAERS Safety Report 9789213 (Version 1)
Quarter: 2013Q4

REPORT INFORMATION
  Report Type: Spontaneous
  Country: KP (occurrence: KP)
  Receive Date: 20131230
  Receipt Date: 20131230
  Transmission Date: 20140711
  Serious: Yes (Other)
  Sender: FDA-Public Use
  Company Number: KP-WATSON-2013-23483

PATIENT
  Age: 36 Year
  Sex: Female

DRUGS (4)
  1. AMLODIPINE (UNKNOWN) [Suspect]
     Indication: HYPERTENSION
     Dosage: 5 MG, DAILY
     Route: 065
  2. LORAZEPAM (UNKNOWN) [Suspect]
     Indication: ANXIETY
     Dosage: 0.5 MG, DAILY
     Route: 065
  3. IMIDAPRIL [Suspect]
     Indication: HYPERTENSION
     Dosage: 5 MG, DAILY
     Route: 065
  4. BARNIDIPINE HYDROCHLORIDE [Suspect]
     Indication: HYPERTENSION
     Dosage: 10 MG, DAILY
     Route: 065

REACTIONS (2)
  - Stillbirth [Not Recovered/Not Resolved]
  - Maternal exposure during pregnancy [Not Recovered/Not Resolved]
